FAERS Safety Report 6926446-5 (Version None)
Quarter: 2010Q3

REPORT INFORMATION
  Report Type: 
  Country: None (occurrence: None)
  Receive Date: 20100816
  Receipt Date: 20100715
  Transmission Date: 20110219
  Serious: Yes (Hospitalization)
  Sender: FDA-Public Use
  Company Number: US-BAYER-201026260NA

PATIENT
  Age: 43 Year
  Sex: Female

DRUGS (4)
  1. BETASERON [Suspect]
     Indication: RELAPSING-REMITTING MULTIPLE SCLEROSIS
     Dosage: TOTAL DAILY DOSE: 8 MIU
     Route: 058
     Dates: start: 20000201, end: 20100401
  2. TYSABRI [Concomitant]
  3. NEURONTIN [Concomitant]
     Dosage: TOTAL DAILY DOSE: 1600 MG
  4. CYMBALTA [Concomitant]
     Dosage: TOTAL DAILY DOSE: 60 MG

REACTIONS (1)
  - MULTIPLE SCLEROSIS RELAPSE [None]
